FAERS Safety Report 6343393-0 (Version None)
Quarter: 2009Q3

REPORT INFORMATION
  Report Type: 
  Country: None (occurrence: None)
  Receive Date: 20090908
  Receipt Date: 20090901
  Transmission Date: 20100115
  Serious: Yes (Other)
  Sender: FDA-Public Use
  Company Number: PHHY2009CA37631

PATIENT
  Sex: Male

DRUGS (2)
  1. SANDOSTATIN LAR [Suspect]
     Indication: RECTAL CANCER METASTATIC
     Dosage: 30 MG, QMO
     Route: 030
     Dates: start: 20071201
  2. CHEMOTHERAPEUTICS NOS [Concomitant]

REACTIONS (3)
  - DECREASED APPETITE [None]
  - FATIGUE [None]
  - WEIGHT DECREASED [None]
